FAERS Safety Report 5611658-3 (Version None)
Quarter: 2008Q1

REPORT INFORMATION
  Report Type: 
  Country: None (occurrence: None)
  Receive Date: 20080201
  Receipt Date: 20080123
  Transmission Date: 20080703
  Serious: Yes (Disabling, Other)
  Sender: FDA-Public Use
  Company Number: GB-ABBOTT-08P-167-0435051-00

PATIENT
  Sex: Female
  Weight: 70.6 kg

DRUGS (5)
  1. HUMIRA [Suspect]
     Indication: RHEUMATOID ARTHRITIS
     Route: 058
     Dates: start: 20071001, end: 20071015
  2. MENTHOL W/METHYL SALICYLATE [Concomitant]
     Indication: DRUG USE FOR UNKNOWN INDICATION
  3. CALCIUM CARBONATE [Concomitant]
     Indication: DRUG USE FOR UNKNOWN INDICATION
     Dates: start: 20030101
  4. FERROUS SULFATE [Concomitant]
     Indication: ANAEMIA
     Dates: start: 20060101
  5. PARACETAMOL [Concomitant]
     Indication: DRUG USE FOR UNKNOWN INDICATION
     Dates: start: 20010101

REACTIONS (1)
  - POSTMENOPAUSAL HAEMORRHAGE [None]
